FAERS Safety Report 8322472-2 (Version None)
Quarter: 2012Q2

REPORT INFORMATION
  Report Type: 
  Country: None (occurrence: None)
  Receive Date: 20120430
  Receipt Date: 20100114
  Transmission Date: 20120825
  Serious: No
  Sender: FDA-Public Use
  Company Number: US-TEVA-2010000198

PATIENT
  Sex: Female

DRUGS (3)
  1. NUVIGIL [Suspect]
     Dosage: 250 MILLIGRAM;
     Route: 048
     Dates: start: 20100201
  2. NUVIGIL [Suspect]
     Indication: NARCOLEPSY
     Dosage: 150 MILLIGRAM;
     Route: 048
     Dates: start: 20100101, end: 20100201
  3. PROVIGIL [Concomitant]
     Indication: NARCOLEPSY
     Route: 048
     Dates: start: 20100201

REACTIONS (1)
  - DRUG INEFFECTIVE [None]
